FAERS Safety Report 11819725 (Version 1)
Quarter: 2015Q4

REPORT INFORMATION
  Report Type: Spontaneous
  Country: US (occurrence: None)
  Receive Date: 20151209
  Receipt Date: 20151209
  Transmission Date: 20160305
  Serious: Yes (Hospitalization)
  Sender: FDA-Public Use
  Company Number: None

PATIENT
  Age: 81 Year
  Sex: Female
  Weight: 72 kg

DRUGS (10)
  1. CA VIT D [Concomitant]
  2. ATORVASTATIN [Concomitant]
     Active Substance: ATORVASTATIN
  3. HCTZ [Concomitant]
     Active Substance: HYDROCHLOROTHIAZIDE
  4. WARFARIN [Suspect]
     Active Substance: WARFARIN
     Indication: DIABETES MELLITUS
     Dosage: Q MWF
     Route: 048
  5. AMLODIPINE [Concomitant]
     Active Substance: AMLODIPINE BESYLATE
  6. ALLOPURINOL. [Concomitant]
     Active Substance: ALLOPURINOL
  7. OMEGA 3 [Concomitant]
     Active Substance: OMEGA-3 FATTY ACIDS
  8. WARFARIN [Suspect]
     Active Substance: WARFARIN
     Indication: DIABETES MELLITUS
     Dosage: Q THFSS
     Route: 048
  9. ALEVE [Suspect]
     Active Substance: NAPROXEN SODIUM
  10. QUINAPRIL [Concomitant]
     Active Substance: QUINAPRIL\QUINAPRIL HYDROCHLORIDE

REACTIONS (3)
  - Haemorrhagic anaemia [None]
  - Diverticulum intestinal haemorrhagic [None]
  - Lower gastrointestinal haemorrhage [None]

NARRATIVE: CASE EVENT DATE: 20150908
